FAERS Safety Report 7115815 (Version 4)
Quarter: 2013Q1

REPORT INFORMATION
  Report Type: Spontaneous
  Country: JP (occurrence: JP)
  Receive Date: 20090916
  Receipt Date: 20130329
  Transmission Date: 20140127
  Serious: Yes (Death, Life-Threatening, Hospitalization, Other)
  Sender: FDA-Public Use
  Company Number: PHHY2009JP39506

PATIENT
  Age: 67 Year
  Sex: Female

DRUGS (13)
  1. NILOTINIB [Suspect]
     Indication: ACUTE LYMPHOCYTIC LEUKAEMIA
     Dosage: 800 MG, UNK
     Route: 048
     Dates: start: 20090414, end: 20090615
  2. NEORAL [Suspect]
     Indication: PROPHYLAXIS AGAINST GRAFT VERSUS HOST DISEASE
     Dosage: 120 MG, UNK
     Route: 048
     Dates: start: 20090412, end: 20090510
  3. PROGRAF [Concomitant]
     Indication: PROPHYLAXIS AGAINST GRAFT VERSUS HOST DISEASE
     Dosage: 0.6 MG/KG, UNK
     Route: 042
     Dates: start: 20090511, end: 20090702
  4. PREDONINE [Concomitant]
     Indication: ACUTE LYMPHOCYTIC LEUKAEMIA
     Dosage: 50 MG, UNK
     Route: 042
     Dates: start: 20090519, end: 20090702
  5. URSO [Concomitant]
     Indication: PROPHYLAXIS
     Dosage: 60 MG, UNK
     Route: 048
     Dates: start: 20090414, end: 20090615
  6. DIFLUCAN [Concomitant]
     Indication: PROPHYLAXIS
     Dosage: 200 MG, UNK
     Route: 048
     Dates: start: 20090414, end: 20090615
  7. BAKTAR [Concomitant]
     Indication: PROPHYLAXIS
     Dosage: 1 DF, UNK
     Route: 048
     Dates: start: 20090414, end: 20090615
  8. ZOVIRAX [Concomitant]
     Indication: PROPHYLAXIS
     Dosage: 200 MG, UNK
     Route: 048
     Dates: start: 20090414, end: 20090615
  9. METHOTREXATE [Concomitant]
  10. ARA-C [Concomitant]
  11. METHYLPREDNISOLONE [Concomitant]
  12. FLUDARABINE PHOSPHATE [Concomitant]
     Dosage: 180 MG/M2, DIVIDED OVER 6 DAYS
  13. BUSULFAN [Concomitant]
     Dosage: 6.4 MG/KG, DIVIDED OVER 2 DAYS

REACTIONS (15)
  - Pneumatosis intestinalis [Fatal]
  - Portal venous gas [Fatal]
  - Septic shock [Fatal]
  - Graft versus host disease [Fatal]
  - Pulmonary haemorrhage [Fatal]
  - Gastrointestinal necrosis [Recovering/Resolving]
  - Acute hepatic failure [Not Recovered/Not Resolved]
  - Gastrointestinal haemorrhage [Recovering/Resolving]
  - Diarrhoea [Not Recovered/Not Resolved]
  - Arrhythmia [Not Recovered/Not Resolved]
  - Blood pressure decreased [Not Recovered/Not Resolved]
  - Abdominal pain [Unknown]
  - Renal impairment [Not Recovered/Not Resolved]
  - Blood urea increased [Unknown]
  - Blood uric acid increased [Not Recovered/Not Resolved]
